FAERS Safety Report 13661460 (Version 1)
Quarter: 2017Q2

REPORT INFORMATION
  Report Type: Spontaneous
  Country: US (occurrence: US)
  Receive Date: 20170616
  Receipt Date: 20170616
  Transmission Date: 20170830
  Serious: No
  Sender: FDA-Public Use
  Company Number: US-US WORLDMEDS, LLC-USW201610-000718

PATIENT
  Age: 58 Year
  Sex: Male
  Weight: 95.25 kg

DRUGS (10)
  1. LANTUS [Concomitant]
     Active Substance: INSULIN GLARGINE
  2. METFORMIN [Concomitant]
     Active Substance: METFORMIN HYDROCHLORIDE
  3. LOSARTAN. [Concomitant]
     Active Substance: LOSARTAN
  4. ETANERCEPT [Concomitant]
     Active Substance: ETANERCEPT
  5. ATORVASTATIN [Concomitant]
     Active Substance: ATORVASTATIN
  6. APOKYN [Suspect]
     Active Substance: APOMORPHINE HYDROCHLORIDE
     Indication: PARKINSON^S DISEASE
     Route: 058
     Dates: start: 20161013
  7. NOVOLOG [Concomitant]
     Active Substance: INSULIN ASPART
  8. ASPIRIN. [Concomitant]
     Active Substance: ASPIRIN
  9. PIOGLITAZONE. [Concomitant]
     Active Substance: PIOGLITAZONE
  10. TIGAN [Concomitant]
     Active Substance: TRIMETHOBENZAMIDE HYDROCHLORIDE
     Dates: start: 20161010

REACTIONS (2)
  - Yawning [Recovering/Resolving]
  - Somnolence [Recovering/Resolving]

NARRATIVE: CASE EVENT DATE: 20161017
